FAERS Safety Report 10953641 (Version 3)
Quarter: 2015Q2

REPORT INFORMATION
  Report Type: Spontaneous
  Country: JP (occurrence: JP)
  Receive Date: 20150325
  Receipt Date: 20150507
  Transmission Date: 20150821
  Serious: Yes (Life-Threatening, Hospitalization, Disabling, Congenital Anomaly)
  Sender: FDA-Public Use
  Company Number: JP-ELI_LILLY_AND_COMPANY-JP201503006131

PATIENT
  Age: 8 Year
  Sex: Female
  Weight: 25.2 kg

DRUGS (5)
  1. EXCEGRAN [Suspect]
     Active Substance: ZONISAMIDE
     Indication: ALTERED STATE OF CONSCIOUSNESS
  2. RISPERDAL [Suspect]
     Active Substance: RISPERIDONE
     Indication: AUTISM SPECTRUM DISORDER
     Dosage: 1.5 MG, QD
     Route: 048
     Dates: end: 20140121
  3. EXCEGRAN [Suspect]
     Active Substance: ZONISAMIDE
     Indication: SEIZURE
     Dosage: 60 MG, BID
     Route: 048
     Dates: start: 20130708, end: 20140121
  4. METHYLPHENIDATE [Concomitant]
     Active Substance: METHYLPHENIDATE
     Indication: ATTENTION DEFICIT/HYPERACTIVITY DISORDER
     Route: 065
  5. STRATTERA [Suspect]
     Active Substance: ATOMOXETINE HYDROCHLORIDE
     Indication: ATTENTION DEFICIT/HYPERACTIVITY DISORDER
     Dosage: 5 MG, QD
     Route: 048
     Dates: start: 2011, end: 20140121

REACTIONS (8)
  - Ventricular fibrillation [Recovered/Resolved with Sequelae]
  - Congestive cardiomyopathy [Not Recovered/Not Resolved]
  - Influenza [Recovered/Resolved]
  - Hypoxic-ischaemic encephalopathy [Recovered/Resolved]
  - Altered state of consciousness [Recovered/Resolved]
  - Cardio-respiratory arrest [Recovered/Resolved]
  - Ventricular tachycardia [Recovered/Resolved]
  - Seizure [Recovered/Resolved]

NARRATIVE: CASE EVENT DATE: 20140112
